FAERS Safety Report 17411397 (Version 1)
Quarter: 2020Q1

REPORT INFORMATION
  Report Type: Spontaneous
  Country: US (occurrence: US)
  Receive Date: 20200212
  Receipt Date: 20200212
  Transmission Date: 20200409
  Serious: No
  Sender: FDA-Public Use
  Company Number: US-GLAXOSMITHKLINE-US2020022614

PATIENT
  Age: 48 Year
  Sex: Female

DRUGS (1)
  1. ABREVA [Suspect]
     Active Substance: DOCOSANOL
     Indication: ORAL HERPES
     Dosage: 5 TIMES ADAY
     Dates: start: 20200129, end: 20200203

REACTIONS (3)
  - Pain [Recovered/Resolved]
  - Condition aggravated [Recovering/Resolving]
  - Oral herpes [Recovering/Resolving]
